FAERS Safety Report 12424941 (Version 1)
Quarter: 2016Q2

REPORT INFORMATION
  Report Type: Spontaneous
  Country: ES (occurrence: ES)
  Receive Date: 20160601
  Receipt Date: 20160601
  Transmission Date: 20160815
  Serious: Yes (Hospitalization)
  Sender: FDA-Public Use
  Company Number: ES-NOVOPROD-493417

PATIENT
  Age: 78 Year
  Sex: Female

DRUGS (9)
  1. LIPOSIT [Concomitant]
     Route: 065
  2. SUTRIL NEO [Concomitant]
  3. COROPRES                           /00984501/ [Concomitant]
  4. PRANDIN [Suspect]
     Active Substance: REPAGLINIDE
     Indication: TYPE 2 DIABETES MELLITUS
     Dosage: UNK
     Route: 065
     Dates: start: 20131218, end: 20140803
  5. DUPHALAC [Concomitant]
     Active Substance: LACTULOSE
  6. ACOVIL [Concomitant]
     Active Substance: PHENIRAMINE
  7. ORFIDAL [Concomitant]
     Active Substance: LORAZEPAM
  8. URSOBILANE [Concomitant]
  9. BESITRAN [Concomitant]
     Active Substance: SERTRALINE HYDROCHLORIDE
     Route: 065

REACTIONS (1)
  - Syncope [Recovered/Resolved]

NARRATIVE: CASE EVENT DATE: 20140803
